FAERS Safety Report 19495064 (Version 2)
Quarter: 2022Q1

REPORT INFORMATION
  Report Type: Spontaneous
  Country: GB (occurrence: GB)
  Receive Date: 20210706
  Receipt Date: 20220329
  Transmission Date: 20220424
  Serious: Yes (Life-Threatening, Hospitalization, Other)
  Sender: FDA-Public Use
  Company Number: GB-MHRA-EYC 00254481

PATIENT
  Age: 40 Year
  Sex: Male
  Weight: 51.25 kg

DRUGS (1)
  1. METFORMIN [Suspect]
     Active Substance: METFORMIN HYDROCHLORIDE
     Indication: Ill-defined disorder
     Dosage: 500 MILLIGRAM
     Route: 048
     Dates: start: 20130101, end: 20181125

REACTIONS (4)
  - Lactic acidosis [Recovered/Resolved]
  - Abdominal pain [Unknown]
  - Coma [Unknown]
  - Confusional state [Unknown]

NARRATIVE: CASE EVENT DATE: 20181125
